FAERS Safety Report 7120280-1 (Version None)
Quarter: 2010Q4

REPORT INFORMATION
  Report Type: 
  Country: None (occurrence: None)
  Receive Date: 20101123
  Receipt Date: 20101111
  Transmission Date: 20110411
  Serious: Yes (Hospitalization)
  Sender: FDA-Public Use
  Company Number: ES-ELI_LILLY_AND_COMPANY-ES201010000948

PATIENT
  Sex: Female

DRUGS (12)
  1. FORTEO [Suspect]
     Indication: OSTEOPOROSIS
     Dosage: 20 UG, DAILY (1/D)
     Route: 058
     Dates: start: 20100901
  2. DACORTIN [Concomitant]
     Dosage: UNK, UNKNOWN
     Route: 048
     Dates: end: 20101101
  3. METROTONIN [Concomitant]
     Dosage: UNK, UNKNOWN
     Route: 048
  4. INALADUO [Concomitant]
     Indication: ASTHMA
     Dosage: UNK, 2/D
     Route: 055
  5. INALADUO [Concomitant]
     Dosage: UNK, DAILY (1/D)
     Route: 055
  6. CALCIO [Concomitant]
     Dosage: UNK, DAILY (1/D)
     Route: 048
  7. NOLOTIL [Concomitant]
     Dosage: UNK, UNKNOWN
     Route: 048
  8. ENANTON [Concomitant]
     Dosage: UNK, UNKNOWN
     Route: 048
  9. AMILORIDE HCL AND HYDROCHLOROTHIAZIDE [Concomitant]
     Dosage: UNK, UNKNOWN
     Route: 048
  10. BILOVAS [Concomitant]
     Dosage: UNK, DAILY (1/D)
     Route: 048
  11. HIERRO [Concomitant]
     Dosage: UNK, DAILY (1/D)
     Route: 048
  12. CIPROFLOXACIN [Concomitant]
     Dosage: UNK, UNKNOWN
     Route: 048

REACTIONS (6)
  - ARTHRALGIA [None]
  - CONSTIPATION [None]
  - DIZZINESS [None]
  - OSTEOMYELITIS [None]
  - POSTOPERATIVE WOUND INFECTION [None]
  - PYREXIA [None]
